FAERS Safety Report 6199260-9 (Version None)
Quarter: 2009Q2

REPORT INFORMATION
  Report Type: 
  Country: None (occurrence: None)
  Receive Date: 20090522
  Receipt Date: 20090515
  Transmission Date: 20091009
  Serious: Yes (Death)
  Sender: FDA-Public Use
  Company Number: JP-BAYER-200911561BYL

PATIENT

DRUGS (2)
  1. FLUDARA [Suspect]
     Indication: CORD BLOOD TRANSPLANT THERAPY
     Dosage: AS USED: 30 MG/M2
     Route: 042
     Dates: start: 20081101
  2. BUSULFAN [Concomitant]
     Indication: CORD BLOOD TRANSPLANT THERAPY
     Route: 065
     Dates: start: 20081101

REACTIONS (2)
  - DISSEMINATED INTRAVASCULAR COAGULATION [None]
  - INFECTION [None]
